FAERS Safety Report 8997203 (Version 1)
Quarter: 2013Q1

REPORT INFORMATION
  Report Type: Spontaneous
  Country: GB (occurrence: GB)
  Receive Date: 20130104
  Receipt Date: 20130104
  Transmission Date: 20140127
  Serious: Yes (Other)
  Sender: FDA-Public Use
  Company Number: GB-JNJFOC-20121105886

PATIENT
  Age: 16 Year
  Sex: Male
  Weight: 57 kg

DRUGS (4)
  1. CONCERTA XL [Suspect]
     Indication: ATTENTION DEFICIT/HYPERACTIVITY DISORDER
     Dosage: OVER A YEAR AGO
     Route: 048
     Dates: start: 2010, end: 20121107
  2. ARIPIPRAZOLE [Concomitant]
     Indication: AGGRESSION
     Route: 048
  3. CIRCADIN [Concomitant]
     Indication: INSOMNIA
     Route: 065
  4. DEPAKOTE [Concomitant]
     Indication: MOOD SWINGS
     Route: 065

REACTIONS (3)
  - Thrombocytopenia [Recovered/Resolved]
  - Neutropenia [Recovered/Resolved]
  - Leukopenia [Recovered/Resolved]
